FAERS Safety Report 23389120 (Version 1)
Quarter: 2024Q1

REPORT INFORMATION
  Report Type: Spontaneous
  Country: FR (occurrence: FR)
  Receive Date: 20240110
  Receipt Date: 20240110
  Transmission Date: 20240410
  Serious: Yes (Hospitalization)
  Sender: FDA-Public Use
  Company Number: None

PATIENT
  Age: 70 Year
  Sex: Male
  Weight: 70 kg

DRUGS (4)
  1. CYTARABINE [Suspect]
     Active Substance: CYTARABINE
     Indication: Mantle cell lymphoma stage IV
     Dosage: 1000 MG/M2 (ADJUSTED DOSE) AS 1900 MG TOTAL DOSE IV ON DAYS 1 AND 2 (2 DOSES 12 H APART).
     Route: 042
     Dates: start: 20230705
  2. OXALIPLATIN [Suspect]
     Active Substance: OXALIPLATIN
     Indication: Mantle cell lymphoma stage IV
     Dosage: 100 MG/M? OR 200 MG TOTAL DOSE IV ON DAY
     Route: 042
     Dates: start: 20230705
  3. RITUXIMAB [Suspect]
     Active Substance: RITUXIMAB
     Indication: Mantle cell lymphoma stage IV
     Dosage: 375 MG/M? OR 700 MG TOTAL IV DOSE ON DAY 1
     Route: 042
     Dates: start: 20230705
  4. DEXAMETHASONE [Suspect]
     Active Substance: DEXAMETHASONE
     Indication: Mantle cell lymphoma stage IV
     Dosage: (ADJUSTED DOSE) TOTAL IV OR PER OS DOSE FROM DAY 1 TO DAY 4
     Route: 042
     Dates: start: 20230705

REACTIONS (1)
  - Condition aggravated [Not Recovered/Not Resolved]

NARRATIVE: CASE EVENT DATE: 20230707
